FAERS Safety Report 6255646-5 (Version None)
Quarter: 2009Q3

REPORT INFORMATION
  Report Type: 
  Country: None (occurrence: None)
  Receive Date: 20090701
  Receipt Date: 20090625
  Transmission Date: 20100115
  Serious: Yes (Death, Other)
  Sender: FDA-Public Use
  Company Number: US022276

PATIENT
  Age: 82 Year
  Sex: Female
  Weight: 91.63 kg

DRUGS (17)
  1. TRISENOX [Suspect]
     Indication: ACUTE MYELOID LEUKAEMIA
     Dosage: 18.5 MG (18.5 MG, 1 IN 1 D), INTRAVENOUS DRIP
     Route: 041
     Dates: start: 20080108, end: 20080117
  2. CYTARABINE [Suspect]
     Indication: ACUTE MYELOID LEUKAEMIA
     Dosage: 34.4 MG (17.2 MG, 2 IN 1 D), ORAL
     Route: 048
     Dates: start: 20080108, end: 20080117
  3. CARTIA XT [Concomitant]
  4. BIOTENE ANTIBACTERIAL WASH (GLUCOSE OXIDASE) [Concomitant]
  5. CEFEPIME [Concomitant]
  6. CYCLOBENZAPRINE [Concomitant]
  7. DILTIAZEM [Concomitant]
  8. ESOMEPRAZOLE MAGNESIUM [Concomitant]
  9. GABAPENTIN [Concomitant]
  10. HEPARIN FLUSH (HEPARIN) [Concomitant]
  11. LEVOTHYROXINE SODIUM [Concomitant]
  12. MAGIC MOUTHWASH (STOMATOLOGICALS, MOUTH PREPARATIONS) [Concomitant]
  13. POTASSIUM CHLORIDE [Concomitant]
  14. ACETAMINOPHEN [Concomitant]
  15. DIPHENHYDRAMINE HCL [Concomitant]
  16. FUROSEMIDE [Concomitant]
  17. MAGNESIUM SULFATE [Concomitant]

REACTIONS (15)
  - BLOOD ALBUMIN DECREASED [None]
  - CARDIOPULMONARY FAILURE [None]
  - CHEST PAIN [None]
  - CONFUSIONAL STATE [None]
  - FLUID OVERLOAD [None]
  - FUNGAL INFECTION [None]
  - HAEMOGLOBIN DECREASED [None]
  - OEDEMA PERIPHERAL [None]
  - PLATELET COUNT DECREASED [None]
  - PLEURITIC PAIN [None]
  - PULMONARY HAEMORRHAGE [None]
  - PULMONARY OEDEMA [None]
  - RESPIRATORY FAILURE [None]
  - TACHYCARDIA [None]
  - WHITE BLOOD CELL COUNT DECREASED [None]
